FAERS Safety Report 13312974 (Version 2)
Quarter: 2017Q2

REPORT INFORMATION
  Report Type: Report from Study
  Country: US (occurrence: US)
  Receive Date: 20170309
  Receipt Date: 20170413
  Transmission Date: 20170830
  Serious: Yes (Other)
  Sender: FDA-Public Use
  Company Number: US-JNJFOC-20160617215

PATIENT
  Sex: Male

DRUGS (13)
  1. IMBRUVICA [Suspect]
     Active Substance: IBRUTINIB
     Indication: MANTLE CELL LYMPHOMA
     Route: 048
     Dates: start: 20161203
  2. ATENOLOL. [Concomitant]
     Active Substance: ATENOLOL
  3. ALBUTEROL. [Concomitant]
     Active Substance: ALBUTEROL
  4. DIOVAN [Concomitant]
     Active Substance: VALSARTAN
  5. IMBRUVICA [Suspect]
     Active Substance: IBRUTINIB
     Indication: MANTLE CELL LYMPHOMA
     Route: 048
     Dates: start: 201703
  6. LIPITOR [Concomitant]
     Active Substance: ATORVASTATIN CALCIUM
  7. IMBRUVICA [Suspect]
     Active Substance: IBRUTINIB
     Indication: MANTLE CELL LYMPHOMA
     Route: 048
     Dates: start: 20170104, end: 201703
  8. IMBRUVICA [Suspect]
     Active Substance: IBRUTINIB
     Indication: MANTLE CELL LYMPHOMA
     Route: 048
     Dates: start: 20160304
  9. LORATADINE. [Concomitant]
     Active Substance: LORATADINE
  10. MUCINEX [Concomitant]
     Active Substance: GUAIFENESIN
  11. PROVENTIL [Concomitant]
     Active Substance: ALBUTEROL
  12. DULERA [Concomitant]
     Active Substance: FORMOTEROL FUMARATE DIHYDRATE\MOMETASONE FUROATE
  13. PROAIR HFA [Concomitant]
     Active Substance: ALBUTEROL SULFATE

REACTIONS (6)
  - Haemoglobin decreased [Unknown]
  - Weight decreased [Unknown]
  - Squamous cell carcinoma of skin [Unknown]
  - Skin lesion [Unknown]
  - Hypoacusis [Unknown]
  - Memory impairment [Unknown]

NARRATIVE: CASE EVENT DATE: 2016
